FAERS Safety Report 4791196-0 (Version None)
Quarter: 2005Q4

REPORT INFORMATION
  Report Type: 
  Country: None (occurrence: None)
  Receive Date: 20051005
  Receipt Date: 20050920
  Transmission Date: 20060501
  Serious: Yes (Death, Life-Threatening, Hospitalization)
  Sender: FDA-Public Use
  Company Number: CLOF-10096

PATIENT
  Age: 73 Year
  Sex: Male

DRUGS (15)
  1. CLOFARABINE [Suspect]
     Indication: ACUTE MYELOID LEUKAEMIA
     Dosage: 30 MG/M2 QD X 5 IV
     Route: 042
     Dates: start: 20050810, end: 20050814
  2. TEICOPLANIN [Concomitant]
  3. MEROPENEM [Concomitant]
  4. LEVOFLOXACIN [Concomitant]
  5. CYCLIZINE [Concomitant]
  6. DIAMORPHINE [Concomitant]
  7. SEPTRIN [Concomitant]
  8. FRUSEMIDE [Concomitant]
  9. GLICAZIDE [Concomitant]
  10. ALUMINUM HYDROXINE [Concomitant]
  11. CALCIUM GLUCONATE [Concomitant]
  12. ALLOPURINOL [Concomitant]
  13. METOCLOPRAMIDE [Concomitant]
  14. SANDO-K (POTASSIUM) [Concomitant]
  15. FLUCONAZOLE [Concomitant]

REACTIONS (17)
  - ABDOMINAL DISTENSION [None]
  - BLOOD CORTISOL INCREASED [None]
  - BRAIN MASS [None]
  - CELLULITIS [None]
  - COMA [None]
  - DIABETES INSIPIDUS [None]
  - HAEMORRHAGE INTRACRANIAL [None]
  - HEADACHE [None]
  - HYPOREFLEXIA [None]
  - HYPOTHALAMO-PITUITARY DISORDERS [None]
  - ILEUS [None]
  - INFECTION [None]
  - OBSTRUCTION [None]
  - PLATELET COUNT DECREASED [None]
  - PNEUMONIA [None]
  - VISION BLURRED [None]
  - VISUAL DISTURBANCE [None]
